FAERS Safety Report 14559351 (Version 1)
Quarter: 2018Q1

REPORT INFORMATION
  Report Type: Spontaneous
  Country: US (occurrence: US)
  Receive Date: 20180221
  Receipt Date: 20180221
  Transmission Date: 20180509
  Serious: No
  Sender: FDA-Public Use
  Company Number: US-009507513-1802USA003090

PATIENT
  Sex: Female
  Weight: 53.52 kg

DRUGS (1)
  1. NEXPLANON [Suspect]
     Active Substance: ETONOGESTREL
     Indication: CONTRACEPTION
     Dosage: 1 DF, EVERY THREE YEARS IN LEFT ARM
     Route: 059
     Dates: start: 20170719

REACTIONS (3)
  - Weight decreased [Unknown]
  - Mood altered [Unknown]
  - Feeling abnormal [Unknown]
